FAERS Safety Report 5817501-1 (Version None)
Quarter: 2008Q3

REPORT INFORMATION
  Report Type: 
  Country: None (occurrence: None)
  Receive Date: 20080722
  Receipt Date: 20080711
  Transmission Date: 20090109
  Serious: Yes (Other)
  Sender: FDA-Public Use
  Company Number: US-JNJFOC-20080703447

PATIENT
  Sex: Female
  Weight: 77.11 kg

DRUGS (6)
  1. DURAGESIC-100 [Suspect]
     Indication: PAIN
     Dosage: TWO 100 UG PATCHES
     Route: 062
  2. SINGULAIR [Concomitant]
     Indication: SEASONAL ALLERGY
     Route: 048
  3. NORVASC [Concomitant]
     Indication: HYPERTENSION
     Route: 048
  4. CYMBALTA [Concomitant]
     Indication: DEPRESSION
     Route: 048
  5. LASIX [Concomitant]
     Indication: FLUID RETENTION
     Route: 048
  6. OXYCONTIN [Concomitant]
     Indication: PAIN
     Dosage: MAY HAVE 5 IN 24 HOURS
     Route: 048

REACTIONS (6)
  - ASTHMA [None]
  - BACK PAIN [None]
  - DEPRESSION [None]
  - GASTRIC DISORDER [None]
  - HYPOTHYROIDISM [None]
  - INAPPROPRIATE SCHEDULE OF DRUG ADMINISTRATION [None]
